FAERS Safety Report 8114322-4 (Version None)
Quarter: 2012Q1

REPORT INFORMATION
  Report Type: 
  Country: None (occurrence: None)
  Receive Date: 20120206
  Receipt Date: 20120127
  Transmission Date: 20120608
  Serious: No
  Sender: FDA-Public Use
  Company Number: US-BIOGENIDEC-2011BI031672

PATIENT
  Sex: Female

DRUGS (2)
  1. TYSABRI [Suspect]
     Route: 042
     Dates: start: 20110420, end: 20110812
  2. TYSABRI [Suspect]
     Indication: MULTIPLE SCLEROSIS
     Route: 042
     Dates: start: 20111205

REACTIONS (12)
  - DYSPHONIA [None]
  - LUNG INFECTION [None]
  - APHONIA [None]
  - HYPERTENSION [None]
  - OROPHARYNGEAL CANDIDIASIS [None]
  - VOCAL CORD DISORDER [None]
  - PNEUMONIA [None]
  - PHARYNGITIS [None]
  - ASTHMA [None]
  - HERPES PHARYNGITIS [None]
  - MULTIPLE SCLEROSIS [None]
  - LUNG DISORDER [None]
